FAERS Safety Report 5267293-2 (Version None)
Quarter: 2007Q1

REPORT INFORMATION
  Report Type: 
  Country: None (occurrence: None)
  Receive Date: 20070316
  Receipt Date: 20070312
  Transmission Date: 20070707
  Serious: Yes (Other)
  Sender: FDA-Public Use
  Company Number: JP-JPN-A200700452

PATIENT
  Age: 86 Year
  Sex: Female
  Weight: 48 kg

DRUGS (7)
  1. PAXIL [Suspect]
     Indication: DEPRESSION
     Dosage: 20MG PER DAY
     Route: 048
     Dates: start: 20060101
  2. CALBLOCK [Concomitant]
     Route: 048
  3. CRESTOR [Concomitant]
     Route: 048
  4. RHYTHMY [Concomitant]
     Route: 048
  5. FLUITRAN [Concomitant]
     Route: 048
  6. YODEL S [Concomitant]
     Route: 048
  7. KARY UNI [Concomitant]
     Route: 031

REACTIONS (1)
  - DEPRESSED LEVEL OF CONSCIOUSNESS [None]
